FAERS Safety Report 16130665 (Version 1)
Quarter: 2019Q1

REPORT INFORMATION
  Report Type: Spontaneous
  Country: CZ (occurrence: CZ)
  Receive Date: 20190328
  Receipt Date: 20190328
  Transmission Date: 20190418
  Serious: Yes (Other)
  Sender: FDA-Public Use
  Company Number: CZ-AMGEN-CZESP2019045861

PATIENT
  Sex: Male

DRUGS (22)
  1. FOLINIC ACID [Concomitant]
     Active Substance: LEUCOVORIN
     Dosage: UNK UNK, CYCLICAL
     Dates: start: 201709
  2. FOLINIC ACID [Concomitant]
     Active Substance: LEUCOVORIN
     Dosage: UNK UNK, CYCLICAL (14 SERIES)
     Dates: end: 201806
  3. OXALIPLATIN. [Concomitant]
     Active Substance: OXALIPLATIN
     Indication: METASTASES TO LYMPH NODES
     Dosage: UNK UNK, CYCLICAL (TEN SERIES)
     Dates: start: 201605, end: 201610
  4. OXALIPLATIN. [Concomitant]
     Active Substance: OXALIPLATIN
     Dosage: UNK UNK, CYCLICAL
     Dates: start: 201709
  5. FOLINIC ACID [Concomitant]
     Active Substance: LEUCOVORIN
     Indication: COLON CANCER METASTATIC
     Dosage: UNK UNK, CYCLICAL (NINE SERIES)
     Dates: start: 2012, end: 201303
  6. FOLINIC ACID [Concomitant]
     Active Substance: LEUCOVORIN
     Indication: METASTASES TO LIVER
     Dosage: UNK UNK, CYCLICAL (SIX SERIES)
     Dates: start: 201510
  7. FLUOROURACIL. [Concomitant]
     Active Substance: FLUOROURACIL
     Indication: METASTASES TO LIVER
     Dosage: UNK UNK, CYCLICAL (SIX SERIES)
     Dates: start: 201510
  8. OXALIPLATIN. [Concomitant]
     Active Substance: OXALIPLATIN
     Dosage: UNK UNK, CYCLICAL (DOSE REDUCED, 14 SERIES)
     Dates: end: 201806
  9. FLUOROURACIL. [Concomitant]
     Active Substance: FLUOROURACIL
     Dosage: UNK UNK, CYCLICAL
     Dates: start: 201810
  10. FLUOROURACIL. [Concomitant]
     Active Substance: FLUOROURACIL
     Indication: METASTASES TO LYMPH NODES
     Dosage: UNK UNK, CYCLICAL (TEN SERIES, REDUCED DOSE)
     Dates: start: 201605, end: 201610
  11. FLUOROURACIL. [Concomitant]
     Active Substance: FLUOROURACIL
     Dosage: UNK UNK, CYCLICAL
     Dates: start: 201709
  12. FLUOROURACIL. [Concomitant]
     Active Substance: FLUOROURACIL
     Dosage: UNK UNK, CYCLICAL (DOSE REDUCED, 14 SERIES)
     Dates: end: 201806
  13. OXALIPLATIN. [Concomitant]
     Active Substance: OXALIPLATIN
     Dosage: UNK UNK, CYCLICAL
     Dates: start: 201810
  14. PANITUMUMAB [Suspect]
     Active Substance: PANITUMUMAB
     Indication: COLON CANCER METASTATIC
     Dosage: UNK, SIX SERIES
     Route: 065
     Dates: start: 201510
  15. PANITUMUMAB [Suspect]
     Active Substance: PANITUMUMAB
     Indication: METASTASES TO LYMPH NODES
     Dosage: UNK, 14 SERIES
     Route: 065
     Dates: start: 201709, end: 201806
  16. FLUOROURACIL. [Concomitant]
     Active Substance: FLUOROURACIL
     Indication: COLON CANCER METASTATIC
     Dosage: UNK UNK, CYCLICAL (NINE SERIES)
     Dates: start: 2012, end: 201303
  17. PANITUMUMAB [Suspect]
     Active Substance: PANITUMUMAB
     Indication: METASTASES TO LIVER
     Dosage: UNK, TEN SERIES
     Route: 065
     Dates: start: 201605, end: 201610
  18. FOLINIC ACID [Concomitant]
     Active Substance: LEUCOVORIN
     Indication: METASTASES TO LYMPH NODES
     Dosage: UNK UNK, CYCLICAL (TEN SERIES)
     Dates: start: 201605, end: 201610
  19. OXALIPLATIN. [Concomitant]
     Active Substance: OXALIPLATIN
     Indication: COLON CANCER METASTATIC
     Dosage: UNK UNK, CYCLICAL (NINE SERIES)
     Dates: start: 2012, end: 201303
  20. PANITUMUMAB [Suspect]
     Active Substance: PANITUMUMAB
     Dosage: UNK
     Route: 065
     Dates: start: 201810
  21. FOLINIC ACID [Concomitant]
     Active Substance: LEUCOVORIN
     Dosage: UNK UNK, CYCLICAL
     Dates: start: 201810
  22. OXALIPLATIN. [Concomitant]
     Active Substance: OXALIPLATIN
     Indication: METASTASES TO LIVER
     Dosage: UNK UNK, CYCLICAL (SIX SERIES)
     Dates: start: 201510

REACTIONS (12)
  - Biloma [Unknown]
  - Eyelash changes [Unknown]
  - Epididymitis [Unknown]
  - Paraesthesia [Unknown]
  - Atrial fibrillation [Unknown]
  - Thrombocytopenia [Unknown]
  - Neurotoxicity [Recovered/Resolved]
  - Rash [Unknown]
  - Disease recurrence [Unknown]
  - Urinary tract infection [Unknown]
  - Neutropenia [Unknown]
  - Paronychia [Unknown]

NARRATIVE: CASE EVENT DATE: 2016
